FAERS Safety Report 25208485 (Version 1)
Quarter: 2025Q2

REPORT INFORMATION
  Report Type: Spontaneous
  Country: US (occurrence: None)
  Receive Date: 20250416
  Receipt Date: 20250416
  Transmission Date: 20250717
  Serious: No
  Sender: FDA-CTU
  Company Number: None

PATIENT
  Age: 30 Year
  Sex: Female
  Weight: 100.35 kg

DRUGS (2)
  1. TALTZ [Suspect]
     Active Substance: IXEKIZUMAB
     Indication: Psoriasis
     Dates: start: 20240907
  2. MELOXICAM [Concomitant]
     Active Substance: MELOXICAM
     Dates: start: 20200101

REACTIONS (2)
  - Alopecia [None]
  - Alopecia [None]
